FAERS Safety Report 20163366 (Version 1)
Quarter: 2021Q4

REPORT INFORMATION
  Report Type: Spontaneous
  Country: US (occurrence: US)
  Receive Date: 20211209
  Receipt Date: 20211209
  Transmission Date: 20220304
  Serious: Yes (Life-Threatening, Hospitalization)
  Sender: FDA-Public Use
  Company Number: US-JNJFOC-20211163430

PATIENT
  Age: 46 Year
  Sex: Female
  Weight: 70.8 kg

DRUGS (3)
  1. TYLENOL [Suspect]
     Active Substance: ACETAMINOPHEN
     Indication: Suicide attempt
     Dosage: TOTAL UNKNOWN DOSE OF ACETAMINOPHEN ON 17/AUG/2003
     Route: 065
     Dates: start: 20030817, end: 20030817
  2. CAFFEINE;EPHEDRA SINICA [Concomitant]
     Indication: Product used for unknown indication
     Route: 065
     Dates: end: 20030818
  3. WELLBUTRIN [Concomitant]
     Active Substance: BUPROPION HYDROCHLORIDE
     Indication: Product used for unknown indication
     Dosage: 300 MG FOR 2 MONTHS
     Route: 065
     Dates: end: 20030818

REACTIONS (9)
  - Suicide attempt [Unknown]
  - Acute hepatic failure [Unknown]
  - Intentional overdose [Unknown]
  - Seizure [Recovered/Resolved]
  - Gastrointestinal haemorrhage [Recovered/Resolved]
  - Acute kidney injury [Unknown]
  - Staphylococcal infection [Recovered/Resolved]
  - Fungal infection [Recovered/Resolved]
  - Chest X-ray abnormal [Unknown]

NARRATIVE: CASE EVENT DATE: 20030817
